FAERS Safety Report 20913689 (Version 2)
Quarter: 2022Q2

REPORT INFORMATION
  Report Type: Report from Study
  Country: MX (occurrence: MX)
  Receive Date: 20220604
  Receipt Date: 20220620
  Transmission Date: 20220720
  Serious: Yes (Other)
  Sender: FDA-Public Use
  Company Number: MX-NOVARTISPH-NVSC2022MX128500

PATIENT
  Sex: Female

DRUGS (1)
  1. EXFORGE HCT [Suspect]
     Active Substance: AMLODIPINE BESYLATE\HYDROCHLOROTHIAZIDE\VALSARTAN
     Indication: Hypertension
     Dosage: 1 (105MG), QD
     Route: 048
     Dates: start: 202203

REACTIONS (3)
  - Urinary tract infection [Unknown]
  - Fluid retention [Recovering/Resolving]
  - Peripheral swelling [Recovered/Resolved]
